FAERS Safety Report 6387817-1 (Version None)
Quarter: 2009Q4

REPORT INFORMATION
  Report Type: 
  Country: None (occurrence: None)
  Receive Date: 20091005
  Receipt Date: 20090923
  Transmission Date: 20100525
  Serious: Yes (Disabling, Other)
  Sender: FDA-Public Use
  Company Number: US-ELI_LILLY_AND_COMPANY-US200907002355

PATIENT
  Sex: Male

DRUGS (6)
  1. FORTEO [Suspect]
     Dosage: UNK, UNK
     Dates: start: 20090219
  2. FORTEO [Suspect]
     Dosage: UNK, UNK
     Dates: start: 20090219
  3. PRILOSEC [Concomitant]
  4. ASPIRIN [Concomitant]
  5. CALCIUM [Concomitant]
  6. VITAMIN D [Concomitant]

REACTIONS (6)
  - BONE PAIN [None]
  - COMPRESSION FRACTURE [None]
  - DISABILITY [None]
  - FALL [None]
  - GAIT DISTURBANCE [None]
  - JOINT SPRAIN [None]
